FAERS Safety Report 4954823-0 (Version None)
Quarter: 2006Q1

REPORT INFORMATION
  Report Type: 
  Country: None (occurrence: None)
  Receive Date: 20060322
  Receipt Date: 20060303
  Transmission Date: 20060701
  Serious: Yes (Hospitalization)
  Sender: FDA-Public Use
  Company Number: IT200603001405

PATIENT
  Age: 50 Year
  Sex: Female

DRUGS (1)
  1. HUMALOG [Suspect]
     Indication: SUICIDAL IDEATION
     Dosage: 1000 U, OTHER, INTRAMUSCULAR
     Route: 030
     Dates: start: 20060302, end: 20060302

REACTIONS (4)
  - HYPOGLYCAEMIA [None]
  - INTENTIONAL OVERDOSE [None]
  - SUICIDE ATTEMPT [None]
  - THEFT [None]
